FAERS Safety Report 7622491-5 (Version None)
Quarter: 2011Q3

REPORT INFORMATION
  Report Type: 
  Country: None (occurrence: None)
  Receive Date: 20110719
  Receipt Date: 20110719
  Transmission Date: 20111222
  Serious: Yes (Death)
  Sender: FDA-Public Use
  Company Number: None

PATIENT
  Age: 83 Year
  Sex: Female
  Weight: 61.1 kg

DRUGS (10)
  1. CEFDINIR [Concomitant]
  2. VANCOMYCIN HCL [Concomitant]
  3. BA/BICARB [Concomitant]
  4. DIGOXIN [Concomitant]
  5. COLACE [Concomitant]
  6. FLUCONIZOLE [Concomitant]
  7. DECITABINE [Suspect]
  8. HYDREA [Concomitant]
  9. DECITABINE [Suspect]
     Indication: MYELODYSPLASTIC SYNDROME
     Dosage: 20.15MG 1X/WK SUB-Q INJECTION
     Route: 058
  10. METAROLOL [Concomitant]

REACTIONS (10)
  - CELLULITIS [None]
  - OSTEOARTHRITIS [None]
  - THROMBOPHLEBITIS SUPERFICIAL [None]
  - PNEUMONIA [None]
  - RESPIRATORY FAILURE [None]
  - MUSCULOSKELETAL PAIN [None]
  - RENAL FAILURE [None]
  - GENERAL PHYSICAL HEALTH DETERIORATION [None]
  - MEDICAL DEVICE COMPLICATION [None]
  - NEUTROPHIL COUNT DECREASED [None]
